FAERS Safety Report 6734982-X (Version None)
Quarter: 2010Q2

REPORT INFORMATION
  Report Type: 
  Country: None (occurrence: None)
  Receive Date: 20100521
  Receipt Date: 20100510
  Transmission Date: 20101027
  Serious: Yes (Hospitalization)
  Sender: FDA-Public Use
  Company Number: FR-PFIZER INC-2009211452

PATIENT
  Age: 60 Year
  Sex: Female
  Weight: 75 kg

DRUGS (10)
  1. PEGVISOMANT [Suspect]
     Indication: ACROMEGALY
     Dosage: 10 MG, DAILY
     Route: 058
     Dates: start: 20061207
  2. ATORVASTATIN [Concomitant]
     Dosage: UNK
  3. LEVOTHYROXINE SODIUM [Concomitant]
     Dosage: UNK
  4. TRIMETAZIDINE [Concomitant]
     Dosage: UNK
  5. LIPANTHYL [Concomitant]
     Dosage: UNK
  6. GLUCOR [Concomitant]
     Dosage: UNK
  7. HYDROCORTISONE [Concomitant]
     Dosage: UNK
  8. ASPIRIN [Concomitant]
     Dosage: UNK
  9. ESOMEPRAZOLE [Concomitant]
     Dosage: UNK
  10. NEBIVOLOL [Concomitant]
     Dosage: UNK

REACTIONS (2)
  - CHOLECYSTITIS ACUTE [None]
  - SEPTIC SHOCK [None]
